FAERS Safety Report 8126918-4 (Version None)
Quarter: 2012Q1

REPORT INFORMATION
  Report Type: 
  Country: None (occurrence: None)
  Receive Date: 20120210
  Receipt Date: 20120206
  Transmission Date: 20120608
  Serious: No
  Sender: FDA-Public Use
  Company Number: US-PFIZER INC-2012032974

PATIENT
  Sex: Female
  Weight: 47.619 kg

DRUGS (5)
  1. PREMARIN [Suspect]
     Dosage: 0.3MG
  2. THEOPHYLLINE [Concomitant]
     Indication: BRONCHIECTASIS
     Dosage: 200 MG, DAILY
  3. PREMARIN [Suspect]
     Indication: HORMONE REPLACEMENT THERAPY
     Dosage: UNK
     Dates: start: 19710101
  4. ACETAMINOPHEN [Concomitant]
     Indication: MUSCULOSKELETAL STIFFNESS
     Dosage: UNK, AS NEEDED
  5. ACETYLSALICYLIC ACID [Concomitant]
     Indication: MUSCULOSKELETAL STIFFNESS
     Dosage: UNK, AS NEEDED

REACTIONS (1)
  - MIGRAINE [None]
